FAERS Safety Report 12984122 (Version 2)
Quarter: 2017Q1

REPORT INFORMATION
  Report Type: Spontaneous
  Country: JP (occurrence: JP)
  Receive Date: 20161129
  Receipt Date: 20170215
  Transmission Date: 20170428
  Serious: Yes (Other)
  Sender: FDA-Public Use
  Company Number: JP-MYLANLABS-2016M1050967

PATIENT

DRUGS (6)
  1. WARFARIN [Concomitant]
     Active Substance: WARFARIN
     Indication: PULMONARY EMBOLISM
     Route: 065
  2. BEVACIZUMAB [Concomitant]
     Active Substance: BEVACIZUMAB
     Indication: OVARIAN CLEAR CELL CARCINOMA
     Dosage: 15MG/KG EVERY 21 DAYS
     Route: 065
  3. PACLITAXEL. [Concomitant]
     Active Substance: PACLITAXEL
     Indication: OVARIAN CLEAR CELL CARCINOMA
     Dosage: WEEKLY PACLITAXEL AT 80 MG/M2
     Route: 065
  4. CARBOPLATIN. [Suspect]
     Active Substance: CARBOPLATIN
     Indication: OVARIAN CLEAR CELL CARCINOMA
     Route: 065
  5. ETOPOSIDE. [Concomitant]
     Active Substance: ETOPOSIDE
     Indication: OVARIAN CLEAR CELL CARCINOMA
     Dosage: 50MG DAILY
     Route: 048
  6. DOXORUBICIN [Suspect]
     Active Substance: DOXORUBICIN
     Indication: OVARIAN CLEAR CELL CARCINOMA
     Dosage: 3 CYCLES; 40MG/M2 EVERY 28 DAYS
     Route: 065

REACTIONS (2)
  - Interstitial lung disease [Recovering/Resolving]
  - Anaphylactic reaction [Unknown]
